FAERS Safety Report 8720498 (Version 2)
Quarter: 2015Q2

REPORT INFORMATION
  Report Type: Report from Study
  Country: US (occurrence: US)
  Receive Date: 20120910
  Receipt Date: 20150625
  Transmission Date: 20150821
  Serious: Yes (Other)
  Sender: FDA-Public Use
  Company Number: US-ROCHE-1098752

PATIENT
  Sex: Male

DRUGS (8)
  1. ISORDIL SA [Concomitant]
     Route: 048
  2. ACTIVASE [Suspect]
     Active Substance: ALTEPLASE
     Dosage: OVER 30 MINUTES
     Route: 040
  3. POTASSIUM CHLORIDE. [Concomitant]
     Active Substance: POTASSIUM CHLORIDE
  4. TRIDIL [Concomitant]
     Active Substance: NITROGLYCERIN
     Dosage: 30 MCG PER MINUTES
     Route: 065
  5. CARDIZEM [Concomitant]
     Active Substance: DILTIAZEM HYDROCHLORIDE
     Route: 048
  6. BABY ASPIRIN [Concomitant]
     Active Substance: ASPIRIN
     Route: 048
  7. ACTIVASE [Suspect]
     Active Substance: ALTEPLASE
     Indication: ACUTE MYOCARDIAL INFARCTION
     Route: 040
  8. NITROGLYCERINE [Concomitant]
     Active Substance: NITROGLYCERIN
     Route: 060

REACTIONS (7)
  - Nausea [Recovered/Resolved]
  - Hypotension [Unknown]
  - Ventricular extrasystoles [Unknown]
  - Rhythm idioventricular [Unknown]
  - Vomiting [Unknown]
  - Pyrexia [Unknown]
  - Hyperhidrosis [Unknown]
